FAERS Safety Report 20131307 (Version 6)
Quarter: 2022Q1

REPORT INFORMATION
  Report Type: Report from Study
  Country: FR (occurrence: FR)
  Receive Date: 20211130
  Receipt Date: 20220328
  Transmission Date: 20220423
  Serious: Yes (Hospitalization)
  Sender: FDA-Public Use
  Company Number: FR-BAYER-2021A256023

PATIENT
  Age: 60 Year
  Sex: Male
  Weight: 70 kg

DRUGS (11)
  1. REGORAFENIB [Suspect]
     Active Substance: REGORAFENIB
     Indication: Oesophageal squamous cell carcinoma
     Dosage: 90 MG
     Route: 048
     Dates: start: 20211007, end: 20211027
  2. REGORAFENIB [Suspect]
     Active Substance: REGORAFENIB
     Indication: Oesophageal squamous cell carcinoma
     Dosage: 120 MG
     Route: 048
     Dates: start: 20211104, end: 20211122
  3. REGORAFENIB [Suspect]
     Active Substance: REGORAFENIB
     Indication: Oesophageal squamous cell carcinoma
     Dosage: 90 MG
     Route: 048
     Dates: start: 20211216, end: 20211222
  4. REGORAFENIB [Suspect]
     Active Substance: REGORAFENIB
     Indication: Oesophageal squamous cell carcinoma
     Dosage: 90 MG
     Route: 048
     Dates: start: 20211230, end: 20220119
  5. REGORAFENIB [Suspect]
     Active Substance: REGORAFENIB
     Indication: Oesophageal squamous cell carcinoma
     Dosage: 90 MG
     Route: 048
     Dates: start: 20220127, end: 20220216
  6. REGORAFENIB [Suspect]
     Active Substance: REGORAFENIB
     Indication: Oesophageal squamous cell carcinoma
     Dosage: 90 MG
     Route: 048
     Dates: start: 20220224
  7. NIVOLUMAB [Suspect]
     Active Substance: NIVOLUMAB
     Indication: Oesophageal squamous cell carcinoma
     Dosage: 480 MG
     Route: 042
     Dates: start: 20211007, end: 20211007
  8. NIVOLUMAB [Suspect]
     Active Substance: NIVOLUMAB
     Indication: Oesophageal squamous cell carcinoma
     Dosage: 480 MG
     Route: 042
     Dates: start: 20211104, end: 20211104
  9. NIVOLUMAB [Suspect]
     Active Substance: NIVOLUMAB
     Indication: Oesophageal squamous cell carcinoma
     Dosage: 480 MG
     Route: 042
     Dates: start: 20211230, end: 20211230
  10. NIVOLUMAB [Suspect]
     Active Substance: NIVOLUMAB
     Indication: Oesophageal squamous cell carcinoma
     Dosage: 480 MG
     Route: 042
     Dates: start: 20220127, end: 20220127
  11. NIVOLUMAB [Suspect]
     Active Substance: NIVOLUMAB
     Indication: Oesophageal squamous cell carcinoma
     Dosage: 480 MG
     Route: 042
     Dates: start: 20220224, end: 20220224

REACTIONS (2)
  - Myocardial infarction [Recovered/Resolved]
  - Atrial fibrillation [Not Recovered/Not Resolved]

NARRATIVE: CASE EVENT DATE: 20211122
